FAERS Safety Report 15922795 (Version 1)
Quarter: 2019Q1

REPORT INFORMATION
  Report Type: Report from Study
  Country: IL (occurrence: IL)
  Receive Date: 20190206
  Receipt Date: 20190206
  Transmission Date: 20190417
  Serious: Yes (Hospitalization)
  Sender: FDA-Public Use
  Company Number: IL-ROCHE-2254561

PATIENT
  Age: 58 Year
  Sex: Female

DRUGS (3)
  1. SOLU-MEDROL [Concomitant]
     Active Substance: METHYLPREDNISOLONE SODIUM SUCCINATE
  2. OCREVUS [Suspect]
     Active Substance: OCRELIZUMAB
     Indication: PRIMARY PROGRESSIVE MULTIPLE SCLEROSIS
     Route: 065
     Dates: start: 20171001
  3. DEPALEPT CHRONO [Concomitant]
     Active Substance: VALPROIC ACID

REACTIONS (7)
  - Fatigue [Recovering/Resolving]
  - Urinary tract infection [Unknown]
  - Multiple sclerosis [Unknown]
  - Pneumonia [Unknown]
  - Speech disorder [Unknown]
  - Facial paralysis [Recovering/Resolving]
  - Tremor [Recovering/Resolving]

NARRATIVE: CASE EVENT DATE: 201811
